FAERS Safety Report 19375788 (Version 1)
Quarter: 2021Q2

REPORT INFORMATION
  Report Type: Spontaneous
  Country: GB (occurrence: IE)
  Receive Date: 20210604
  Receipt Date: 20210604
  Transmission Date: 20210717
  Serious: Yes (Hospitalization, Other)
  Sender: FDA-Public Use
  Company Number: IE-ELI_LILLY_AND_COMPANY-IE202105011874

PATIENT
  Age: 22 Year
  Sex: Male

DRUGS (2)
  1. GEMCITABINE HYDROCHLORIDE. [Suspect]
     Active Substance: GEMCITABINE HYDROCHLORIDE
     Indication: EPITHELIOID SARCOMA RECURRENT
     Dosage: 6 CYCLES, CYCLICAL
     Route: 065
  2. DOCETAXEL. [Suspect]
     Active Substance: DOCETAXEL
     Indication: EPITHELIOID SARCOMA RECURRENT
     Dosage: 6 CYCLES CYCLICAL
     Route: 065

REACTIONS (2)
  - Neutropenic sepsis [Unknown]
  - Off label use [Unknown]
